FAERS Safety Report 23719052 (Version 1)
Quarter: 2024Q2

REPORT INFORMATION
  Report Type: Spontaneous
  Country: US (occurrence: US)
  Receive Date: 20240408
  Receipt Date: 20240408
  Transmission Date: 20240716
  Serious: Yes (Other)
  Sender: FDA-Public Use
  Company Number: US-TEVA-VS-3178036

PATIENT

DRUGS (1)
  1. DEXTROAMPHET SACCHARAT, AMPHET ASPARTATE, DEXTROAMPHET SULFATE AND AMP [Suspect]
     Active Substance: AMPHETAMINE ASPARTATE\AMPHETAMINE ASPARTATE MONOHYDRATE\AMPHETAMINE SULFATE\DEXTROAMPHETAMINE SACCHA
     Indication: Attention deficit hyperactivity disorder
     Dosage: CAPSULES - EXTENDED / SUSTAINED RELEASE
     Route: 065

REACTIONS (4)
  - Depression suicidal [Recovered/Resolved]
  - Fatigue [Recovering/Resolving]
  - Brain fog [Recovering/Resolving]
  - Disturbance in attention [Not Recovered/Not Resolved]
